FAERS Safety Report 4740334-4 (Version None)
Quarter: 2005Q3

REPORT INFORMATION
  Report Type: 
  Country: None (occurrence: None)
  Receive Date: 20050810
  Receipt Date: 20050728
  Transmission Date: 20060218
  Serious: Yes (Hospitalization)
  Sender: FDA-Public Use
  Company Number: IE-JNJFOC-20050800018

PATIENT
  Sex: Female

DRUGS (10)
  1. DURAGESIC-100 [Suspect]
     Route: 062
  2. TRAMADOL HCL [Suspect]
     Route: 048
  3. EFFEXOR [Concomitant]
     Route: 065
  4. RAMIPRIL [Concomitant]
     Route: 065
  5. ISTIN [Concomitant]
     Route: 065
  6. SEROQUEL [Concomitant]
     Route: 065
  7. LIORESAL [Concomitant]
     Route: 065
  8. EPILIM [Concomitant]
     Route: 065
  9. WARFANT [Concomitant]
     Route: 065
  10. AULIN [Concomitant]
     Route: 065

REACTIONS (3)
  - DYSPNOEA [None]
  - HALLUCINATION [None]
  - PNEUMONIA ASPIRATION [None]
